FAERS Safety Report 7531521-0 (Version None)
Quarter: 2011Q2

REPORT INFORMATION
  Report Type: 
  Country: None (occurrence: None)
  Receive Date: 20110608
  Receipt Date: 20110525
  Transmission Date: 20111010
  Serious: Yes (Hospitalization)
  Sender: FDA-Public Use
  Company Number: PHHY2011AU45617

PATIENT
  Sex: Female

DRUGS (2)
  1. LYRICA [Interacting]
     Indication: TRIGEMINAL NEURALGIA
  2. TEGRETOL [Suspect]
     Indication: TRIGEMINAL NEURALGIA

REACTIONS (3)
  - DRUG INEFFECTIVE [None]
  - GAIT DISTURBANCE [None]
  - TOXICITY TO VARIOUS AGENTS [None]
